FAERS Safety Report 14554231 (Version 2)
Quarter: 2018Q1

REPORT INFORMATION
  Report Type: Spontaneous
  Country: JP (occurrence: JP)
  Receive Date: 20180220
  Receipt Date: 20180320
  Transmission Date: 20180509
  Serious: Yes (Death, Life-Threatening)
  Sender: FDA-Public Use
  Company Number: JP-PFIZER INC-2018071446

PATIENT
  Age: 72 Year
  Sex: Female
  Weight: 50 kg

DRUGS (13)
  1. FOLIAMIN [Concomitant]
     Active Substance: FOLIC ACID
     Indication: PROPHYLAXIS
     Dosage: 5 MG, WEEKLY
     Route: 048
     Dates: start: 20161024, end: 20170825
  2. VOLTAREN [Concomitant]
     Active Substance: DICLOFENAC SODIUM
     Indication: ANALGESIC THERAPY
  3. LOXONIN [Concomitant]
     Active Substance: LOXOPROFEN SODIUM
     Indication: ANALGESIC THERAPY
  4. CELECOX [Concomitant]
     Active Substance: CELECOXIB
     Indication: ANALGESIC THERAPY
     Dosage: 100 MG, 1X/DAY
     Route: 048
     Dates: start: 20170725, end: 20170825
  5. VOLTAREN [Concomitant]
     Active Substance: DICLOFENAC SODIUM
     Indication: ANTIINFLAMMATORY THERAPY
     Dosage: UNK, 2X/DAY
     Route: 062
     Dates: start: 20170220, end: 20170825
  6. RIMATIL [Concomitant]
     Active Substance: BUCILLAMINE
     Indication: RHEUMATOID ARTHRITIS
     Dosage: 100 MG, 1X/DAY,AFTER MEAL
     Route: 048
     Dates: start: 20161024, end: 20170825
  7. CELECOX [Concomitant]
     Active Substance: CELECOXIB
     Indication: ANTIINFLAMMATORY THERAPY
     Dosage: 100 MG, 2X/DAY, AFTER MEAL
     Route: 048
     Dates: start: 20161024, end: 20170724
  8. LOXONIN [Concomitant]
     Active Substance: LOXOPROFEN SODIUM
     Indication: ANTIINFLAMMATORY THERAPY
     Dosage: 100 MG, 1X/DAY
     Route: 062
     Dates: start: 20170321, end: 20170825
  9. LOQOA [Concomitant]
     Indication: ANALGESIC THERAPY
  10. RHEUMATREX [Suspect]
     Active Substance: METHOTREXATE SODIUM
     Indication: RHEUMATOID ARTHRITIS
     Dosage: 4 MG, WEEKLY
     Route: 048
     Dates: start: 20161024, end: 20161106
  11. LOQOA [Concomitant]
     Indication: ANTIINFLAMMATORY THERAPY
     Dosage: 40 MG, 1X/DAY
     Route: 062
     Dates: start: 20170502, end: 20170825
  12. RHEUMATREX [Suspect]
     Active Substance: METHOTREXATE SODIUM
     Dosage: 6 MG, WEEKLY
     Route: 048
     Dates: start: 20161107, end: 20161225
  13. RHEUMATREX [Suspect]
     Active Substance: METHOTREXATE SODIUM
     Dosage: 8 MG, WEEKLY
     Route: 048
     Dates: start: 20161226, end: 20170825

REACTIONS (3)
  - Lymphoma [Fatal]
  - Tonsillitis [Unknown]
  - Interstitial lung disease [Fatal]

NARRATIVE: CASE EVENT DATE: 20170812
